FAERS Safety Report 5007660-5 (Version None)
Quarter: 2006Q2

REPORT INFORMATION
  Report Type: 
  Country: None (occurrence: None)
  Receive Date: 20060522
  Receipt Date: 20060209
  Transmission Date: 20061013
  Serious: Yes (Congenital Anomaly, Other)
  Sender: FDA-Public Use
  Company Number: FR-AVENTIS-200610565FR

PATIENT
  Age: 33 Year
  Sex: Female
  Weight: 48 kg

DRUGS (6)
  1. ARAVA [Suspect]
     Indication: RHEUMATOID ARTHRITIS
     Route: 048
     Dates: start: 20040201, end: 20051027
  2. CORTANCYL [Suspect]
     Indication: RHEUMATOID ARTHRITIS
     Route: 048
  3. DOLIPRANE [Suspect]
     Indication: RHEUMATOID ARTHRITIS
     Route: 048
  4. MOPRAL [Suspect]
     Route: 048
  5. DEDROGYL [Suspect]
     Route: 048
  6. CACIT D3 [Suspect]
     Route: 048

REACTIONS (7)
  - CONGENITAL ANOMALY [None]
  - DRUG EXPOSURE DURING PREGNANCY [None]
  - ECHINOCOCCIASIS [None]
  - PREGNANCY [None]
  - PULMONARY VALVE STENOSIS [None]
  - TRICUSPID VALVE INCOMPETENCE [None]
  - VENTRICULAR HYPOPLASIA [None]
